FAERS Safety Report 4354397-1 (Version None)
Quarter: 2004Q2

REPORT INFORMATION
  Report Type: 
  Country: None (occurrence: None)
  Receive Date: 20040503
  Receipt Date: 20040419
  Transmission Date: 20050107
  Serious: Yes (Hospitalization)
  Sender: FDA-Public Use
  Company Number: 2004022358

PATIENT
  Age: 76 Year
  Sex: Female
  Weight: 58 kg

DRUGS (6)
  1. UNASYN [Suspect]
     Indication: INFECTION PROPHYLAXIS
     Dosage: 3 GRAM (DAILY), INTRAVENOUS
     Route: 042
     Dates: start: 20040326, end: 20040328
  2. ALL OTHER THERAPEUTIC PRODUCTS (ALL OTHER THERAPEUTIC PRODUCTS) [Concomitant]
  3. NITROUS OXIDE [Concomitant]
  4. FENTANYL CITRATE [Concomitant]
  5. PROPOFOL [Concomitant]
  6. ROPIVACAINE HYDROCHLORIDE [Concomitant]

REACTIONS (1)
  - BRADYCARDIA [None]
